FAERS Safety Report 13901681 (Version 2)
Quarter: 2017Q3

REPORT INFORMATION
  Report Type: Report from Study
  Country: JP (occurrence: JP)
  Receive Date: 20170824
  Receipt Date: 20170926
  Transmission Date: 20171127
  Serious: Yes (Hospitalization, Other)
  Sender: FDA-Public Use
  Company Number: JP-PFIZER INC-2017288565

PATIENT
  Age: 62 Year
  Sex: Male
  Weight: 66.8 kg

DRUGS (12)
  1. PREDONINE [Concomitant]
     Active Substance: PREDNISOLONE
     Dosage: 7.5 MG, DAILY
     Route: 048
     Dates: start: 20170111, end: 20170215
  2. MYSLEE [Concomitant]
     Active Substance: ZOLPIDEM TARTRATE
     Dosage: UNK
     Dates: start: 20170210
  3. XELJANZ [Suspect]
     Active Substance: TOFACITINIB CITRATE
     Indication: RHEUMATOID ARTHRITIS
     Dosage: 5 MG, 2X/DAY
     Route: 048
     Dates: start: 20161018, end: 20170207
  4. XELJANZ [Suspect]
     Active Substance: TOFACITINIB CITRATE
     Dosage: 5 MG, 2X/DAY
     Route: 048
     Dates: start: 20170228, end: 20170425
  5. PREDONINE [Concomitant]
     Active Substance: PREDNISOLONE
     Dosage: 20 MG, DAILY
     Route: 048
     Dates: start: 20170216, end: 20170228
  6. PREDONINE [Concomitant]
     Active Substance: PREDNISOLONE
     Dosage: 10 MG, DAILY
     Route: 048
     Dates: start: 20170301, end: 20170328
  7. PREDONINE [Concomitant]
     Active Substance: PREDNISOLONE
     Dosage: 12.5 MG, DAILY
     Route: 048
     Dates: start: 20161008, end: 20161115
  8. PREDONINE [Concomitant]
     Active Substance: PREDNISOLONE
     Dosage: 10 MG, DAILY
     Route: 048
     Dates: start: 20161116, end: 20170110
  9. PREDONINE [Concomitant]
     Active Substance: PREDNISOLONE
     Dosage: 7.5 MG, DAILY
     Route: 048
     Dates: start: 20170329
  10. TROXSIN [Concomitant]
     Active Substance: TROXIPIDE
     Route: 048
  11. PREDONINE [Concomitant]
     Active Substance: PREDNISOLONE
     Dosage: 7.5 MG, DAILY
     Route: 048
     Dates: end: 20161007
  12. MOHRUS [Concomitant]
     Active Substance: KETOPROFEN
     Route: 061

REACTIONS (2)
  - Prostate cancer [Recovered/Resolved]
  - Interstitial lung disease [Recovered/Resolved]

NARRATIVE: CASE EVENT DATE: 20170207
